FAERS Safety Report 8399806 (Version 4)
Quarter: 2013Q2

REPORT INFORMATION
  Report Type: Spontaneous
  Country: US (occurrence: US)
  Receive Date: 20120210
  Receipt Date: 20130617
  Transmission Date: 20140414
  Serious: Yes (Hospitalization)
  Sender: FDA-Public Use
  Company Number: US-BIOGENIDEC-2012BI004259

PATIENT
  Age: 69 Year
  Sex: Female

DRUGS (1)
  1. AVONEX [Suspect]
     Indication: MULTIPLE SCLEROSIS
     Route: 030
     Dates: start: 20040730

REACTIONS (3)
  - Multiple sclerosis relapse [Recovered/Resolved]
  - Motor dysfunction [Not Recovered/Not Resolved]
  - Confusional state [Not Recovered/Not Resolved]
